FAERS Safety Report 5900890-7 (Version None)
Quarter: 2008Q3

REPORT INFORMATION
  Report Type: 
  Country: None (occurrence: None)
  Receive Date: 20080925
  Receipt Date: 20080912
  Transmission Date: 20090109
  Serious: Yes (Other)
  Sender: FDA-Public Use
  Company Number: RENA-1000227

PATIENT
  Age: 49 Year
  Sex: Male
  Weight: 58 kg

DRUGS (9)
  1. RENAGEL [Suspect]
     Indication: HYPERPHOSPHATAEMIA
     Dosage: 1.6 G,TID,ORAL
     Route: 048
     Dates: start: 20060801, end: 20080824
  2. ASCORBIC ACID [Concomitant]
  3. NORIPURUM (FERRIC HYDROXIDE POLYMALTOSE COMPLEX) [Concomitant]
  4. EPOETIN ALFA [Concomitant]
  5. ATENOLOL [Concomitant]
  6. FOLIC ACID [Concomitant]
  7. B COMPLEX (NICOTINAMIDE, PYRIDOXINE HYDROCHLORIDE, RIBOFLAVIN, THIAMIN [Concomitant]
  8. CALCITRIOL [Concomitant]
  9. CLONAZEPAM [Concomitant]

REACTIONS (8)
  - EXPIRED DRUG ADMINISTERED [None]
  - HYPERPARATHYROIDISM [None]
  - HYPERPHOSPHATAEMIA [None]
  - HYPOPHOSPHATAEMIA [None]
  - PRURITUS [None]
  - REMOVAL OF RENAL TRANSPLANT [None]
  - SELF-MEDICATION [None]
  - TREATMENT NONCOMPLIANCE [None]
